FAERS Safety Report 25681465 (Version 1)
Quarter: 2025Q3

REPORT INFORMATION
  Report Type: Spontaneous
  Country: CA (occurrence: CA)
  Receive Date: 20250814
  Receipt Date: 20250814
  Transmission Date: 20251021
  Serious: Yes (Life-Threatening, Hospitalization)
  Sender: BAYER HEALTHCARE PHARMACEUTICALS INC.
  Company Number: CA-BAYER-2025A107611

PATIENT
  Age: 38 Year
  Sex: Female
  Weight: 126 kg

DRUGS (9)
  1. YAZ [Suspect]
     Active Substance: DROSPIRENONE\ETHINYL ESTRADIOL
     Indication: Premenstrual dysphoric disorder
     Dosage: 1 DF, QD
     Route: 048
  2. PREGABALIN [Concomitant]
     Active Substance: PREGABALIN
  3. CITALOPRAM [Concomitant]
     Active Substance: CITALOPRAM
  4. DIAZEPAM [Concomitant]
     Active Substance: DIAZEPAM
  5. ADDERALL [Concomitant]
     Active Substance: AMPHETAMINE ASPARTATE\AMPHETAMINE SULFATE\DEXTROAMPHETAMINE SACCHARATE\DEXTROAMPHETAMINE SULFATE
  6. NAPROXEN [Concomitant]
     Active Substance: NAPROXEN
  7. ACETAMINOPHEN [Concomitant]
     Active Substance: ACETAMINOPHEN
  8. CYCLOBENZAPRINE [Concomitant]
     Active Substance: CYCLOBENZAPRINE
  9. NALTREXONE [Concomitant]
     Active Substance: NALTREXONE

REACTIONS (2)
  - Oxygen saturation decreased [Recovered/Resolved]
  - Cardiac failure [Recovered/Resolved]
